FAERS Safety Report 22242130 (Version 4)
Quarter: 2024Q3

REPORT INFORMATION
  Report Type: Spontaneous
  Country: DE (occurrence: DE)
  Receive Date: 20230421
  Receipt Date: 20240705
  Transmission Date: 20241017
  Serious: Yes (Death, Other)
  Sender: MERCK
  Company Number: None

PATIENT
  Age: 1 Year
  Sex: Female
  Weight: 7 kg

DRUGS (3)
  1. VARIVAX [Suspect]
     Active Substance: VARICELLA-ZOSTER VIRUS STRAIN OKA/MERCK LIVE ANTIGEN
     Route: 030
     Dates: start: 20220615
  2. STERILE DILUENT (WATER) [Suspect]
     Active Substance: WATER
     Dosage: UNK
     Route: 030
     Dates: start: 20220615
  3. PRIORIX [Suspect]
     Active Substance: MEASLES-MUMPS-RUBELLA VIRUS VACCINE
     Indication: Immunisation
     Dosage: NOT KNOWN; DOSAGE 1
     Route: 030
     Dates: start: 20220615

REACTIONS (9)
  - Seizure [Fatal]
  - Hypertension [Fatal]
  - Disseminated intravascular coagulation [Fatal]
  - Systemic inflammatory response syndrome [Fatal]
  - Renal failure [Fatal]
  - Thrombocytopenia [Fatal]
  - Hypoglycaemia [Fatal]
  - Encephalopathy [Fatal]
  - Circulatory collapse [Fatal]

NARRATIVE: CASE EVENT DATE: 20220620
